FAERS Safety Report 18953137 (Version 3)
Quarter: 2021Q2

REPORT INFORMATION
  Report Type: Report from Study
  Country: None (occurrence: CH)
  Receive Date: 20210301
  Receipt Date: 20210503
  Transmission Date: 20210717
  Serious: Yes (Death, Other)
  Sender: FDA-Public Use
  Company Number: CH-ABBVIE-21K-151-3793202-00

PATIENT
  Age: 82 Year
  Sex: Male

DRUGS (4)
  1. DUODOPA [Suspect]
     Active Substance: CARBIDOPA\LEVODOPA
     Dosage: MD 3.0ML, CRD 4.1ML/H, CRN 1.7ML/H, ED 1.0ML
     Route: 050
     Dates: start: 20201202, end: 20201207
  2. DUODOPA [Suspect]
     Active Substance: CARBIDOPA\LEVODOPA
     Dosage: MD 10.0ML, CRD 4.1ML/H, CRN 1.7ML/H, ED 1.0ML
     Route: 050
     Dates: start: 20201207
  3. DUODOPA [Suspect]
     Active Substance: CARBIDOPA\LEVODOPA
     Indication: PARKINSON^S DISEASE
     Dosage: 1 CASSETTE / DAY
     Route: 050
     Dates: start: 20150302
  4. DUODOPA [Suspect]
     Active Substance: CARBIDOPA\LEVODOPA
     Dosage: MD 10.0ML, CRD 4.3ML/H, CRN 1.6ML/H, ED 2.0ML
     Route: 050
     Dates: start: 20200910, end: 20201202

REACTIONS (5)
  - Fall [Unknown]
  - Bedridden [Unknown]
  - Death [Fatal]
  - Fluid intake reduced [Unknown]
  - Eating disorder [Unknown]

NARRATIVE: CASE EVENT DATE: 2021
